FAERS Safety Report 21153952 (Version 1)
Quarter: 2022Q3

REPORT INFORMATION
  Report Type: Other
  Country: US (occurrence: None)
  Receive Date: 20220801
  Receipt Date: 20220801
  Transmission Date: 20221026
  Serious: Yes (Other)
  Sender: FDA-Public Use
  Company Number: US-ROCHE-3148382

PATIENT
  Sex: Female

DRUGS (1)
  1. OCREVUS [Suspect]
     Active Substance: OCRELIZUMAB
     Indication: Relapsing multiple sclerosis
     Dosage: YES
     Route: 042
     Dates: start: 20180209, end: 20200617

REACTIONS (5)
  - Mental status changes [Unknown]
  - Clonic convulsion [Unknown]
  - Pyrexia [Unknown]
  - Confusional state [Unknown]
  - Encephalitis viral [Unknown]
